FAERS Safety Report 24651959 (Version 2)
Quarter: 2024Q4

REPORT INFORMATION
  Report Type: Spontaneous
  Country: GB (occurrence: GB)
  Receive Date: 20241122
  Receipt Date: 20241127
  Transmission Date: 20250114
  Serious: Yes (Life-Threatening, Other)
  Sender: TEVA
  Company Number: None

PATIENT
  Age: 39 Year
  Sex: Male
  Weight: 120 kg

DRUGS (1)
  1. ATORVASTATIN [Suspect]
     Active Substance: ATORVASTATIN
     Indication: Adverse drug reaction
     Dosage: DURATION: 22117 DAYS
     Route: 065
     Dates: start: 20241028

REACTIONS (3)
  - Suicidal ideation [Not Recovered/Not Resolved]
  - Medication error [Unknown]
  - Completed suicide [Not Recovered/Not Resolved]

NARRATIVE: CASE EVENT DATE: 20241108
